FAERS Safety Report 9849923 (Version 3)
Quarter: 2015Q3

REPORT INFORMATION
  Report Type: Spontaneous
  Country: US (occurrence: US)
  Receive Date: 20140128
  Receipt Date: 20150826
  Transmission Date: 20151125
  Serious: Yes (Hospitalization)
  Sender: FDA-Public Use
  Company Number: US-ELI_LILLY_AND_COMPANY-US201401007472

PATIENT
  Age: 79 Year
  Sex: Female

DRUGS (12)
  1. LANTUS [Concomitant]
     Active Substance: INSULIN GLARGINE
     Indication: TYPE 2 DIABETES MELLITUS
     Dosage: 37 U, EACH EVENING
     Route: 065
  2. OXYGEN. [Concomitant]
     Active Substance: OXYGEN
  3. HUMALOG [Suspect]
     Active Substance: INSULIN LISPRO
     Indication: TYPE 2 DIABETES MELLITUS
     Dosage: 17 U, TID
     Route: 065
     Dates: start: 20130221
  4. PLAVIX [Concomitant]
     Active Substance: CLOPIDOGREL BISULFATE
  5. LORAZEPAM. [Concomitant]
     Active Substance: LORAZEPAM
  6. HUMALOG [Suspect]
     Active Substance: INSULIN LISPRO
     Dosage: 18 U, TID
     Route: 065
  7. METOPROLOL [Concomitant]
     Active Substance: METOPROLOL
  8. HUMULIN 70/30 [Suspect]
     Active Substance: INSULIN HUMAN
     Indication: TYPE 2 DIABETES MELLITUS
     Dosage: UNK
     Route: 065
     Dates: end: 20130221
  9. OXYBUTIN [Concomitant]
     Active Substance: OXYBUTYNIN
  10. LIPITOR [Concomitant]
     Active Substance: ATORVASTATIN CALCIUM
  11. BENAZEPRIL [Concomitant]
     Active Substance: BENAZEPRIL HYDROCHLORIDE
  12. AMLODIPINE [Concomitant]
     Active Substance: AMLODIPINE BESYLATE

REACTIONS (4)
  - Polyp [Unknown]
  - Vomiting [Recovering/Resolving]
  - Dyspepsia [Recovering/Resolving]
  - Nausea [Not Recovered/Not Resolved]

NARRATIVE: CASE EVENT DATE: 2011
